FAERS Safety Report 25051008 (Version 1)
Quarter: 2025Q1

REPORT INFORMATION
  Report Type: Report from Study
  Country: EG (occurrence: EG)
  Receive Date: 20250307
  Receipt Date: 20250307
  Transmission Date: 20250409
  Serious: Yes (Disabling, Other)
  Sender: SANDOZ
  Company Number: EG-SANDOZ-SDZ2024EG060503

PATIENT
  Age: 11 Year
  Sex: Female

DRUGS (1)
  1. OMNITROPE [Suspect]
     Active Substance: SOMATROPIN
     Indication: Growth hormone deficiency
     Dosage: 0.9 MG, QD
     Route: 058

REACTIONS (8)
  - Gait disturbance [Unknown]
  - Pain in extremity [Unknown]
  - Growth retardation [Unknown]
  - Expired device used [Unknown]
  - Drug dose omission by device [Unknown]
  - Device issue [Unknown]
  - Drug administered in wrong device [Unknown]
  - Therapy cessation [Unknown]

NARRATIVE: CASE EVENT DATE: 20240601
